FAERS Safety Report 15899972 (Version 3)
Quarter: 2019Q3

REPORT INFORMATION
  Report Type: Spontaneous
  Country: BR (occurrence: BR)
  Receive Date: 20190201
  Receipt Date: 20190909
  Transmission Date: 20191004
  Serious: Yes (Other)
  Sender: FDA-Public Use
  Company Number: BR-ROCHE-2249815

PATIENT
  Sex: Female

DRUGS (5)
  1. VALIUM [Suspect]
     Active Substance: DIAZEPAM
     Indication: ANXIETY
     Dosage: ONE TABLET
     Route: 065
     Dates: start: 1964
  2. ZINA [Suspect]
     Active Substance: LEVOCETIRIZINE DIHYDROCHLORIDE
     Indication: PRODUCT USED FOR UNKNOWN INDICATION
     Route: 065
  3. GALVUS [Suspect]
     Active Substance: VILDAGLIPTIN
     Indication: DIABETES MELLITUS
     Route: 065
  4. RINOSORO [Concomitant]
     Indication: PRODUCT USED FOR UNKNOWN INDICATION
  5. SORINE [SODIUM CHLORIDE] [Suspect]
     Active Substance: SODIUM CHLORIDE
     Indication: PRODUCT USED FOR UNKNOWN INDICATION
     Route: 065

REACTIONS (29)
  - Gait inability [Recovering/Resolving]
  - Somnolence [Recovered/Resolved]
  - Inner ear disorder [Unknown]
  - Insomnia [Recovered/Resolved]
  - Arthropod bite [Unknown]
  - Sinusitis [Recovered/Resolved]
  - Pruritus [Unknown]
  - Weight increased [Unknown]
  - Hypoacusis [Not Recovered/Not Resolved]
  - Drug dependence [Not Recovered/Not Resolved]
  - Laryngitis [Recovered/Resolved]
  - Urinary incontinence [Not Recovered/Not Resolved]
  - Tinnitus [Not Recovered/Not Resolved]
  - Ill-defined disorder [Unknown]
  - Dizziness [Not Recovered/Not Resolved]
  - Glaucoma [Recovered/Resolved]
  - Perineal injury [Not Recovered/Not Resolved]
  - Osteoarthritis [Not Recovered/Not Resolved]
  - Conjunctivitis [Recovered/Resolved]
  - Influenza [Recovered/Resolved]
  - Pharyngitis [Recovered/Resolved]
  - Vertigo [Unknown]
  - Diabetes mellitus [Unknown]
  - Decreased appetite [Unknown]
  - Cataract [Not Recovered/Not Resolved]
  - Nasal disorder [Unknown]
  - Fall [Unknown]
  - Urticaria [Unknown]
  - Hypertension [Recovering/Resolving]

NARRATIVE: CASE EVENT DATE: 1975
